FAERS Safety Report 16095708 (Version 1)
Quarter: 2019Q2

REPORT INFORMATION
  Report Type: Spontaneous
  Country: US (occurrence: US)
  Receive Date: 20190320
  Receipt Date: 20190320
  Transmission Date: 20190711
  Serious: Yes (Death)
  Sender: FDA-Public Use
  Company Number: None

PATIENT
  Age: 73 Year
  Sex: Female

DRUGS (4)
  1. HEPARIN [Suspect]
     Active Substance: HEPARIN SODIUM
  2. TIROFIBAN [Suspect]
     Active Substance: TIROFIBAN
  3. ASPIRIN. [Suspect]
     Active Substance: ASPIRIN
  4. TICAGRELOR. [Suspect]
     Active Substance: TICAGRELOR

REACTIONS (4)
  - Hypotension [None]
  - Subdural haematoma [None]
  - Bradycardia [None]
  - Unresponsive to stimuli [None]

NARRATIVE: CASE EVENT DATE: 20190203
